FAERS Safety Report 4380760-9 (Version None)
Quarter: 2004Q2

REPORT INFORMATION
  Report Type: 
  Country: None (occurrence: None)
  Receive Date: 20040616
  Receipt Date: 20040602
  Transmission Date: 20050107
  Serious: Yes (Death)
  Sender: FDA-Public Use
  Company Number: GBS040514998

PATIENT
  Age: 51 Year
  Sex: Male

DRUGS (1)
  1. PROZAC [Suspect]

REACTIONS (5)
  - COMPLETED SUICIDE [None]
  - INJURY ASPHYXIATION [None]
  - INSOMNIA [None]
  - PERSONALITY CHANGE [None]
  - REFUSAL OF TREATMENT BY PATIENT [None]
